FAERS Safety Report 15681655 (Version 3)
Quarter: 2019Q1

REPORT INFORMATION
  Report Type: Spontaneous
  Country: US (occurrence: US)
  Receive Date: 20181203
  Receipt Date: 20190115
  Transmission Date: 20190417
  Serious: No
  Sender: FDA-Public Use
  Company Number: US-BEH-2018097275

PATIENT
  Sex: Female

DRUGS (24)
  1. CARBINOXAMINE MALEATE. [Concomitant]
     Active Substance: CARBINOXAMINE MALEATE
     Route: 065
  2. PLAQUENIL                          /00072602/ [Concomitant]
     Active Substance: HYDROXYCHLOROQUINE DIPHOSPHATE
     Route: 065
  3. ALBUTEROL SULFATE. [Concomitant]
     Active Substance: ALBUTEROL SULFATE
     Route: 065
  4. METHOTREXATE. [Concomitant]
     Active Substance: METHOTREXATE
     Route: 065
  5. HIZENTRA [Suspect]
     Active Substance: HUMAN IMMUNOGLOBULIN G
     Indication: IMMUNODEFICIENCY COMMON VARIABLE
     Dosage: 10 G (50 ML), QW
     Route: 058
     Dates: start: 201711
  6. HIZENTRA [Suspect]
     Active Substance: HUMAN IMMUNOGLOBULIN G
     Dosage: 10 G (50 ML), TOT
     Route: 058
  7. COUMADIN [Concomitant]
     Active Substance: WARFARIN SODIUM
     Route: 065
  8. SYNTHROID [Concomitant]
     Active Substance: LEVOTHYROXINE SODIUM
     Route: 065
  9. DEXILANT [Concomitant]
     Active Substance: DEXLANSOPRAZOLE
     Route: 065
  10. XYZAL [Concomitant]
     Active Substance: LEVOCETIRIZINE DIHYDROCHLORIDE
     Indication: PREMEDICATION
     Dosage: TAKING TE MORNING BEFORE
     Route: 065
  11. HIZENTRA [Suspect]
     Active Substance: HUMAN IMMUNOGLOBULIN G
     Dosage: 10 G (50 ML), TOT
     Route: 058
  12. REGLAN [Concomitant]
     Active Substance: METOCLOPRAMIDE HYDROCHLORIDE
     Dosage: 10 MG, UNK
     Route: 065
  13. AMITIZA [Concomitant]
     Active Substance: LUBIPROSTONE
     Route: 065
  14. DICLOFENAC SODIUM. [Concomitant]
     Active Substance: DICLOFENAC SODIUM
     Route: 065
  15. SEROQUEL [Concomitant]
     Active Substance: QUETIAPINE FUMARATE
     Route: 065
  16. POTASSIUM [Concomitant]
     Active Substance: POTASSIUM
     Route: 065
  17. ASPIRIN. [Concomitant]
     Active Substance: ASPIRIN
     Route: 065
  18. VALIUM [Concomitant]
     Active Substance: DIAZEPAM
     Route: 065
  19. DULAGLUTIDE. [Concomitant]
     Active Substance: DULAGLUTIDE
     Dosage: 1.5 MG/0.5 ML, UNK
     Route: 065
  20. BUMEX [Concomitant]
     Active Substance: BUMETANIDE
     Route: 065
  21. COLACE [Concomitant]
     Active Substance: DOCUSATE SODIUM
     Route: 065
  22. FOLIC ACID. [Concomitant]
     Active Substance: FOLIC ACID
     Route: 065
  23. LAMICTAL [Concomitant]
     Active Substance: LAMOTRIGINE
     Route: 065
  24. SINGULAIR [Concomitant]
     Active Substance: MONTELUKAST SODIUM
     Route: 065

REACTIONS (7)
  - Injection site erythema [Not Recovered/Not Resolved]
  - Injection site swelling [Recovered/Resolved]
  - Pyrexia [Unknown]
  - Urticaria [Not Recovered/Not Resolved]
  - Pyrexia [Recovered/Resolved]
  - Pruritus [Not Recovered/Not Resolved]
  - Injection site swelling [Not Recovered/Not Resolved]
